FAERS Safety Report 25469196 (Version 1)
Quarter: 2025Q2

REPORT INFORMATION
  Report Type: Spontaneous
  Country: CN (occurrence: CN)
  Receive Date: 20250623
  Receipt Date: 20250623
  Transmission Date: 20250716
  Serious: Yes (Hospitalization)
  Sender: JOHNSON AND JOHNSON
  Company Number: CN-JNJFOC-20250619280

PATIENT
  Age: 70 Year
  Sex: Female
  Weight: 44 kg

DRUGS (5)
  1. DARZALEX FASPRO [Suspect]
     Active Substance: DARATUMUMAB\HYALURONIDASE-FIHJ
     Indication: Neoplasm malignant
     Route: 058
     Dates: start: 20250422, end: 20250422
  2. BORTEZOMIB [Suspect]
     Active Substance: BORTEZOMIB
     Indication: Neoplasm malignant
     Route: 058
     Dates: start: 20250422, end: 20250422
  3. CYTARABINE [Suspect]
     Active Substance: CYTARABINE
     Indication: Neoplasm malignant
     Dosage: 14 MG IH Q12H (D2-D7)
     Route: 058
     Dates: start: 20250423, end: 20250428
  4. EPIRUBICIN HYDROCHLORIDE [Suspect]
     Active Substance: EPIRUBICIN HYDROCHLORIDE
     Indication: Neoplasm malignant
     Route: 041
     Dates: start: 20250423, end: 20250426
  5. SODIUM CHLORIDE [Concomitant]
     Active Substance: SODIUM CHLORIDE
     Indication: Vehicle solution use
     Dosage: (D2-D5)
     Route: 041
     Dates: start: 20250423, end: 20250426

REACTIONS (2)
  - Myelosuppression [Not Recovered/Not Resolved]
  - Intentional product use issue [Unknown]

NARRATIVE: CASE EVENT DATE: 20250525
